FAERS Safety Report 6588794-0 (Version None)
Quarter: 2010Q1

REPORT INFORMATION
  Report Type: 
  Country: None (occurrence: None)
  Receive Date: 20100218
  Receipt Date: 20100211
  Transmission Date: 20100710
  Serious: Yes (Death)
  Sender: FDA-Public Use
  Company Number: CO-JNJFOC-20100206760

PATIENT
  Sex: Female

DRUGS (2)
  1. SPORANOX [Suspect]
     Indication: HISTOPLASMOSIS
     Route: 065
  2. SPORANOX [Suspect]
     Route: 065

REACTIONS (1)
  - HISTOPLASMOSIS [None]
